FAERS Safety Report 9279087 (Version 3)
Quarter: 2013Q2

REPORT INFORMATION
  Report Type: Spontaneous
  Country: US (occurrence: US)
  Receive Date: 20130508
  Receipt Date: 20130529
  Transmission Date: 20140414
  Serious: Yes (Hospitalization)
  Sender: FDA-Public Use
  Company Number: US-WATSON-2013-07774

PATIENT
  Sex: 0

DRUGS (3)
  1. OXYCODONE HYDROCHLORIDE/ACETAMINOPHEN 7.5/325 MG (WATSON LABORATORIES) [Suspect]
     Indication: PAIN
     Dosage: 7.5/325MG, ONE TAB EVERY 6 HRS.
     Route: 048
     Dates: start: 2006, end: 20130419
  2. FENTANYL [Suspect]
     Indication: CHEST PAIN
     Dosage: 50MCG, 1 PATCH, EVERY 72 HRS.
     Route: 062
     Dates: start: 20130321
  3. FENTANYL [Suspect]
     Indication: BACK PAIN
     Dosage: 50MCG, 1 PATCH, EVERY 72 HRS.
     Route: 062
     Dates: start: 2007, end: 20130320

REACTIONS (4)
  - Pleuritic pain [Recovered/Resolved]
  - Non-cardiac chest pain [Recovered/Resolved]
  - Drug screen negative [Not Recovered/Not Resolved]
  - Blood potassium decreased [Not Recovered/Not Resolved]
